FAERS Safety Report 7610754-9 (Version None)
Quarter: 2011Q3

REPORT INFORMATION
  Report Type: 
  Country: None (occurrence: None)
  Receive Date: 20110715
  Receipt Date: 20110707
  Transmission Date: 20111222
  Serious: Yes (Hospitalization)
  Sender: FDA-Public Use
  Company Number: US-ELI_LILLY_AND_COMPANY-US201107002666

PATIENT
  Sex: Female

DRUGS (3)
  1. GLIPIZIDE [Concomitant]
     Dosage: 2.5 MG, EACH MORNING
  2. HUMALOG MIX 75/25 [Suspect]
     Indication: DIABETES MELLITUS
     Dosage: UNK, TID
     Dates: start: 20101101
  3. HUMALOG MIX 75/25 [Suspect]
     Dosage: UNK, TID
     Dates: start: 20101101

REACTIONS (8)
  - DIVERTICULITIS [None]
  - MALAISE [None]
  - WEIGHT DECREASED [None]
  - INJECTION SITE PAIN [None]
  - COLONIC POLYP [None]
  - POST PROCEDURAL COMPLICATION [None]
  - IMPAIRED HEALING [None]
  - URINARY TRACT INFECTION [None]
